FAERS Safety Report 12283374 (Version 3)
Quarter: 2016Q2

REPORT INFORMATION
  Report Type: Spontaneous
  Country: ES (occurrence: ES)
  Receive Date: 20160419
  Receipt Date: 20160516
  Transmission Date: 20160815
  Serious: Yes (Other)
  Sender: FDA-Public Use
  Company Number: ES-ABBVIE-16P-144-1607536-00

PATIENT
  Age: 70 Year
  Sex: Male

DRUGS (2)
  1. VALPROIC ACID. [Suspect]
     Active Substance: VALPROIC ACID
     Indication: BIPOLAR DISORDER
     Route: 065
  2. QUETIAPINE. [Suspect]
     Active Substance: QUETIAPINE
     Indication: BIPOLAR DISORDER
     Route: 065

REACTIONS (9)
  - Hepatotoxicity [Recovering/Resolving]
  - Jaundice [Recovering/Resolving]
  - Discomfort [Recovering/Resolving]
  - Urobilinogen urine increased [Recovering/Resolving]
  - Pyrexia [Recovered/Resolved]
  - Abdominal pain upper [Recovering/Resolving]
  - Urine analysis abnormal [Recovering/Resolving]
  - Hepatic enzyme increased [Recovering/Resolving]
  - Malaise [Recovering/Resolving]
